FAERS Safety Report 11802060 (Version 5)
Quarter: 2016Q4

REPORT INFORMATION
  Report Type: Spontaneous
  Country: HU (occurrence: HU)
  Receive Date: 20151204
  Receipt Date: 20161227
  Transmission Date: 20170206
  Serious: Yes (Hospitalization, Other)
  Sender: FDA-Public Use
  Company Number: HU-PFIZER INC-2015344360

PATIENT
  Age: 35 Year
  Sex: Female

DRUGS (3)
  1. SUTENT [Suspect]
     Active Substance: SUNITINIB MALATE
     Dosage: ON THE EVEN DAYS 50 MG SUTENT, ON THE UNEVEN DAYS 25 MG (14TH CYCLE)
     Route: 048
  2. SUTENT [Suspect]
     Active Substance: SUNITINIB MALATE
     Dosage: ON THE EVEN DAYS 50 MG SUTENT, ON THE UNEVEN DAYS 25 MG (6TH CYCLE)
     Route: 048
     Dates: start: 20151212
  3. SUTENT [Suspect]
     Active Substance: SUNITINIB MALATE
     Indication: RENAL CANCER METASTATIC
     Dosage: 50 MG, DAILY
     Route: 048
     Dates: start: 20150508

REACTIONS (8)
  - Stomatitis [Unknown]
  - Nephrotic syndrome [Recovering/Resolving]
  - Nausea [Recovering/Resolving]
  - Pleural effusion [Recovering/Resolving]
  - Hypothyroidism [Recovering/Resolving]
  - Thrombocytopenia [Recovering/Resolving]
  - Hyperchlorhydria [Unknown]
  - Blood pressure increased [Unknown]

NARRATIVE: CASE EVENT DATE: 20151220
